FAERS Safety Report 7556340-0 (Version None)
Quarter: 2011Q2

REPORT INFORMATION
  Report Type: 
  Country: None (occurrence: None)
  Receive Date: 20110620
  Receipt Date: 20110610
  Transmission Date: 20111010
  Serious: Yes (Other)
  Sender: FDA-Public Use
  Company Number: JP-JNJFOC-20110602384

PATIENT
  Age: 86 Year
  Sex: Female

DRUGS (6)
  1. FENTANYL-100 [Suspect]
     Route: 062
  2. FENTANYL-100 [Suspect]
     Route: 062
  3. FENTANYL-100 [Suspect]
     Indication: CANCER PAIN
     Route: 062
  4. PRIMPERAN TAB [Concomitant]
     Route: 048
  5. PROCHLORPERAZINE [Concomitant]
     Route: 048
  6. UNKNOWN MEDICATION [Concomitant]
     Indication: PRODUCT USED FOR UNKNOWN INDICATION
     Route: 065

REACTIONS (5)
  - NAUSEA [None]
  - SEDATION [None]
  - VOMITING [None]
  - HAEMORRHOIDS [None]
  - DEMENTIA [None]
